APPROVED DRUG PRODUCT: ASMANEX HFA
Active Ingredient: MOMETASONE FUROATE
Strength: 0.20MG/INH
Dosage Form/Route: AEROSOL, METERED;INHALATION
Application: N205641 | Product #002
Applicant: ORGANON LLC
Approved: Apr 25, 2014 | RLD: Yes | RS: Yes | Type: RX